FAERS Safety Report 25727970 (Version 1)
Quarter: 2025Q3

REPORT INFORMATION
  Report Type: Spontaneous
  Country: BR (occurrence: BR)
  Receive Date: 20250826
  Receipt Date: 20250826
  Transmission Date: 20251020
  Serious: Yes (Other)
  Sender: NOVARTIS
  Company Number: BR-002147023-NVSC2025BR130484

PATIENT
  Sex: Male

DRUGS (1)
  1. TABRECTA [Suspect]
     Active Substance: CAPMATINIB
     Indication: Neoplasm malignant
     Route: 065

REACTIONS (8)
  - Neoplasm malignant [Not Recovered/Not Resolved]
  - Metastases to central nervous system [Unknown]
  - Malignant neoplasm progression [Not Recovered/Not Resolved]
  - Metastasis [Unknown]
  - Seizure [Unknown]
  - Mobility decreased [Not Recovered/Not Resolved]
  - Pain [Not Recovered/Not Resolved]
  - Product availability issue [Unknown]
